FAERS Safety Report 9115769 (Version 1)
Quarter: 2013Q1

REPORT INFORMATION
  Report Type: Spontaneous
  Country: IT (occurrence: None)
  Receive Date: 20130129
  Receipt Date: 20130129
  Transmission Date: 20140127
  Serious: Yes (Other)
  Sender: FDA-Public Use
  Company Number: GER/ITL/13/0027536

PATIENT
  Age: 74 Year
  Sex: Female
  Weight: 90 kg

DRUGS (4)
  1. RAMIPRIL (RAMIPRIL) [Suspect]
     Indication: HYPERTENSION
     Dosage: 10 MG,  1 IN 1 D,  ORAL?11/06/2012  -  11/07/2012
     Route: 048
     Dates: start: 20121106, end: 20121107
  2. MODURETIC (MODURETIC) [Concomitant]
  3. NORASC (AMLODIPINE BESILATE) [Concomitant]
  4. COUMADIN (WARFARIN SODIUM) [Concomitant]

REACTIONS (2)
  - Tachycardia [None]
  - Arrhythmia [None]
